FAERS Safety Report 22163819 (Version 1)
Quarter: 2023Q2

REPORT INFORMATION
  Report Type: Spontaneous
  Country: DE (occurrence: DE)
  Receive Date: 20230401
  Receipt Date: 20230401
  Transmission Date: 20230722
  Serious: Yes (Other)
  Sender: FDA-Public Use
  Company Number: DE-009507513-2303DEU010060

PATIENT
  Sex: Male

DRUGS (1)
  1. KEYTRUDA [Suspect]
     Active Substance: PEMBROLIZUMAB
     Indication: Transitional cell carcinoma
     Dosage: FIRST LINE
     Route: 042

REACTIONS (4)
  - Hemiplegia [Recovered/Resolved]
  - Hemiplegia [Recovering/Resolving]
  - Transient ischaemic attack [Unknown]
  - Hypersensitivity [Unknown]
